FAERS Safety Report 8246958-4 (Version None)
Quarter: 2012Q1

REPORT INFORMATION
  Report Type: 
  Country: None (occurrence: None)
  Receive Date: 20120327
  Receipt Date: 20120314
  Transmission Date: 20120608
  Serious: Yes (Death, Disabling)
  Sender: FDA-Public Use
  Company Number: TCI2012A00379

PATIENT
  Age: 72 Year
  Sex: Female

DRUGS (10)
  1. OLMESARTAN MEDOXOMIL [Concomitant]
  2. FUROSEMIDE [Concomitant]
  3. DEPAS (ETIZOLAM) [Concomitant]
  4. PREDNISOLONE [Concomitant]
  5. AMLODIN OD (AMLODIPINE BESILATE) [Concomitant]
  6. PERSANTIN [Concomitant]
  7. PIROLACTON (SPIRONOLACTONE) [Concomitant]
  8. LANSOPRAZOLE [Suspect]
     Indication: GASTRODUODENAL ULCER
     Dosage: 15 MG (15 MG, 1 IN 1 D)
     Route: 048
     Dates: start: 20111026, end: 20111108
  9. GLYCYRRHIZA GLABRA, RHEUM PALMATUM [Concomitant]
  10. MUCOSTA (REBAMIPIDE) [Concomitant]

REACTIONS (12)
  - CONDITION AGGRAVATED [None]
  - RESPIRATORY FAILURE [None]
  - PLEURAL EFFUSION [None]
  - EATING DISORDER [None]
  - DRUG ERUPTION [None]
  - BLOOD PRESSURE DECREASED [None]
  - HAEMODIALYSIS [None]
  - STAPHYLOCOCCUS TEST POSITIVE [None]
  - INTERSTITIAL LUNG DISEASE [None]
  - RENAL FAILURE CHRONIC [None]
  - PULMONARY FIBROSIS [None]
  - RASH ERYTHEMATOUS [None]
